FAERS Safety Report 20124414 (Version 1)
Quarter: 2021Q4

REPORT INFORMATION
  Report Type: Report from Study
  Country: ES (occurrence: ES)
  Receive Date: 20211129
  Receipt Date: 20211129
  Transmission Date: 20220303
  Serious: Yes (Other)
  Sender: FDA-Public Use
  Company Number: ES-VELOXIS PHARMACEUTICALS-2020VELES-000743

PATIENT
  Age: 71 Year
  Sex: Male
  Weight: 82.9 kg

DRUGS (28)
  1. MYCOPHENOLATE MOFETIL [Suspect]
     Active Substance: MYCOPHENOLATE MOFETIL
     Indication: Immunosuppression
     Dosage: 2000 MILLIGRAM DAILY;
     Dates: start: 20190626
  2. MYCOPHENOLATE MOFETIL [Suspect]
     Active Substance: MYCOPHENOLATE MOFETIL
     Dosage: 1000 MILLIGRAM DAILY;
     Dates: start: 20190826
  3. EVEROLIMUS [Suspect]
     Active Substance: EVEROLIMUS
     Indication: Immunosuppression
     Dosage: 2.5 MILLIGRAM DAILY;
     Dates: start: 20191023
  4. CORTICOSTEROID NOS [Suspect]
     Active Substance: CORTICOSTEROID NOS
     Indication: Immunosuppression
     Dosage: 7.5 MILLIGRAM DAILY;
     Dates: start: 20190923
  5. CORTICOSTEROID NOS [Suspect]
     Active Substance: CORTICOSTEROID NOS
     Dosage: 12.5 MILLIGRAM DAILY;
     Dates: start: 20190826
  6. CORTICOSTEROID NOS [Suspect]
     Active Substance: CORTICOSTEROID NOS
     Dosage: 17.5 MILLIGRAM DAILY;
     Dates: start: 20190618
  7. CORTICOSTEROID NOS [Suspect]
     Active Substance: CORTICOSTEROID NOS
     Dosage: 20 MILLIGRAM DAILY;
     Dates: start: 20190626
  8. ENVARSUS XR [Suspect]
     Active Substance: TACROLIMUS
     Indication: Renal transplant
     Dosage: 1.5 MILLIGRAM DAILY;
     Route: 048
     Dates: start: 20191227
  9. ENVARSUS XR [Suspect]
     Active Substance: TACROLIMUS
     Dosage: 6.5 MILLIGRAM DAILY;
     Route: 048
     Dates: start: 20200630
  10. ENVARSUS XR [Suspect]
     Active Substance: TACROLIMUS
     Dosage: 8.5 MILLIGRAM DAILY;
     Route: 048
     Dates: start: 20190718
  11. ENVARSUS XR [Suspect]
     Active Substance: TACROLIMUS
     Dosage: 3.5 MILLIGRAM DAILY;
     Route: 048
     Dates: start: 20190823, end: 20190830
  12. ENVARSUS XR [Suspect]
     Active Substance: TACROLIMUS
     Dosage: 12 MILLIGRAM DAILY;
     Route: 048
     Dates: start: 20190705, end: 20190708
  13. ENVARSUS XR [Suspect]
     Active Substance: TACROLIMUS
     Dosage: 3 MILLIGRAM DAILY;
     Route: 048
     Dates: start: 20190826
  14. ENVARSUS XR [Suspect]
     Active Substance: TACROLIMUS
     Dosage: 2 MILLIGRAM DAILY;
     Route: 048
     Dates: start: 20190923
  15. ENVARSUS XR [Suspect]
     Active Substance: TACROLIMUS
     Dosage: 2.75 MILLIGRAM DAILY;
     Route: 048
     Dates: start: 20190907, end: 20190918
  16. THYMOGLOBULIN [Suspect]
     Active Substance: LAPINE T-LYMPHOCYTE IMMUNE GLOBULIN
     Indication: Immunosuppression
     Dosage: 2020 MILLIGRAM DAILY;
     Dates: start: 2020, end: 2020
  17. THYMOGLOBULIN [Suspect]
     Active Substance: LAPINE T-LYMPHOCYTE IMMUNE GLOBULIN
     Dosage: 329 MILLIGRAM DAILY;
     Dates: start: 20190626, end: 20190627
  18. TACROLIMUS [Suspect]
     Active Substance: TACROLIMUS
     Indication: Renal transplant
     Dosage: 15.5 MILLIGRAM DAILY;
     Dates: start: 20190626, end: 20190706
  19. BISOPROLOL [Concomitant]
     Active Substance: BISOPROLOL
     Indication: Sinus tachycardia
     Dosage: UNK
     Dates: start: 20190708
  20. AMLODIPINE [Concomitant]
     Active Substance: AMLODIPINE BESYLATE
     Indication: Hypertension
     Dosage: UNK
     Dates: start: 20190708
  21. VALGANCICLOVIR [Concomitant]
     Active Substance: VALGANCICLOVIR
     Indication: Prophylaxis
     Dosage: UNK
     Dates: start: 20190626
  22. VALGANCICLOVIR [Concomitant]
     Active Substance: VALGANCICLOVIR
     Dosage: UNK
     Dates: start: 20190626, end: 20190923
  23. SULFAMETHOXAZOLE [Concomitant]
     Active Substance: SULFAMETHOXAZOLE
     Indication: Prophylaxis
     Dosage: UNK
     Dates: start: 20190626
  24. SODIUM PHOSPHATE [Concomitant]
     Active Substance: SODIUM PHOSPHATE
     Indication: Hypophosphataemia
     Dosage: UNK
     Dates: start: 20190708
  25. PARACALCITOLO ACCORD [Concomitant]
     Indication: Hyperparathyroidism
     Dosage: UNK
     Dates: start: 20190708
  26. SULFAMETHOXAZOLE , TRIMETHOPRIM [Concomitant]
     Dosage: UNK,4 MG/ML/ 2 MG/ML
     Dates: start: 20190626, end: 20190923
  27. METHOXY POLYETHYLENE GLYCOL-EPOETIN BETA [Concomitant]
     Active Substance: METHOXY POLYETHYLENE GLYCOL-EPOETIN BETA
     Indication: Anaemia
     Dosage: UNK
     Dates: start: 20190708
  28. TAMSULOSIN [Concomitant]
     Active Substance: TAMSULOSIN
     Indication: Hypertension
     Dosage: UNK
     Dates: start: 20190708

REACTIONS (3)
  - Tremor [Recovered/Resolved]
  - Polyomavirus viraemia [Recovered/Resolved with Sequelae]
  - Tremor [Recovering/Resolving]

NARRATIVE: CASE EVENT DATE: 20190705
